FAERS Safety Report 18497822 (Version 1)
Quarter: 2020Q4

REPORT INFORMATION
  Report Type: Spontaneous
  Country: US (occurrence: US)
  Receive Date: 20201112
  Receipt Date: 20201112
  Transmission Date: 20210114
  Serious: Yes (Death, Congenital Anomaly, Other)
  Sender: FDA-Public Use
  Company Number: US-PURDUE-USA-2020-0176457

PATIENT
  Sex: Male

DRUGS (1)
  1. HYDROMORPHONE TABLETS [Suspect]
     Active Substance: HYDROMORPHONE
     Indication: PRODUCT USED FOR UNKNOWN INDICATION
     Dosage: UNK
     Route: 048

REACTIONS (9)
  - Spina bifida [Unknown]
  - Death [Fatal]
  - Drug dependence [Unknown]
  - Learning disability [Unknown]
  - Drug withdrawal syndrome neonatal [Unknown]
  - Congenital anomaly [Unknown]
  - Developmental delay [Unknown]
  - Heart disease congenital [Unknown]
  - Overdose [Unknown]
